FAERS Safety Report 17835840 (Version 1)
Quarter: 2020Q2

REPORT INFORMATION
  Report Type: Spontaneous
  Country: US (occurrence: US)
  Receive Date: 20200528
  Receipt Date: 20200528
  Transmission Date: 20200714
  Serious: Yes (Other)
  Sender: FDA-Public Use
  Company Number: US-PURDUE PHARMA-USA-2020-0153273

PATIENT
  Sex: Male

DRUGS (1)
  1. OXYCONTIN [Suspect]
     Active Substance: OXYCODONE HYDROCHLORIDE
     Indication: PRODUCT USED FOR UNKNOWN INDICATION
     Dosage: UNK
     Route: 048

REACTIONS (14)
  - Coma [Unknown]
  - Headache [Unknown]
  - Anxiety [Unknown]
  - Diarrhoea [Unknown]
  - Depression [Unknown]
  - Impaired work ability [Unknown]
  - Drug dependence [Unknown]
  - Cardiac operation [Unknown]
  - Vomiting [Unknown]
  - Arthralgia [Unknown]
  - Dyspnoea [Unknown]
  - Disturbance in attention [Unknown]
  - Vision blurred [Unknown]
  - Mood swings [Unknown]
